FAERS Safety Report 16630756 (Version 1)
Quarter: 2019Q3

REPORT INFORMATION
  Report Type: Spontaneous
  Country: FR (occurrence: FR)
  Receive Date: 20190725
  Receipt Date: 20190725
  Transmission Date: 20191004
  Serious: Yes (Hospitalization)
  Sender: FDA-Public Use
  Company Number: FR-TEVA-2019-FR-1081149

PATIENT
  Age: 27 Year
  Sex: Female

DRUGS (2)
  1. IBUPROFENE [Suspect]
     Active Substance: IBUPROFEN
     Indication: PAIN
     Route: 048
     Dates: start: 201812, end: 201812
  2. LEVOTHYROX [Concomitant]
     Active Substance: LEVOTHYROXINE

REACTIONS (1)
  - Papillitis [Recovered/Resolved]

NARRATIVE: CASE EVENT DATE: 20181216
